FAERS Safety Report 5359404-5 (Version None)
Quarter: 2007Q2

REPORT INFORMATION
  Report Type: 
  Country: None (occurrence: None)
  Receive Date: 20070615
  Receipt Date: 20070606
  Transmission Date: 20071010
  Serious: Yes (Death, Other)
  Sender: FDA-Public Use
  Company Number: TH-PFIZER INC-2007029129

PATIENT
  Age: 76 Year
  Sex: Male

DRUGS (4)
  1. DILANTIN [Suspect]
     Indication: CONVULSION PROPHYLAXIS
     Route: 042
  2. DEPAKOTE [Suspect]
     Indication: CONVULSION PROPHYLAXIS
  3. CEFTRIAXONE [Suspect]
     Route: 042
  4. INSULIN [Concomitant]

REACTIONS (6)
  - BLISTER [None]
  - HEPATITIS [None]
  - HYPERSENSITIVITY [None]
  - INFECTION [None]
  - PRURITUS [None]
  - RASH MACULO-PAPULAR [None]
